FAERS Safety Report 20669646 (Version 1)
Quarter: 2022Q2

REPORT INFORMATION
  Report Type: Spontaneous
  Country: CA (occurrence: CA)
  Receive Date: 20220404
  Receipt Date: 20220404
  Transmission Date: 20220721
  Serious: Yes (Hospitalization, Other)
  Sender: FDA-Public Use
  Company Number: CA-SANOFI-01042167

PATIENT
  Sex: Female

DRUGS (1)
  1. DUPIXENT [Suspect]
     Active Substance: DUPILUMAB
     Indication: Eczema
     Route: 058

REACTIONS (6)
  - Pneumonia [Unknown]
  - Hospitalisation [Unknown]
  - Immunosuppression [Unknown]
  - COVID-19 [Unknown]
  - Colitis [Unknown]
  - Product use issue [Unknown]
